FAERS Safety Report 16697012 (Version 3)
Quarter: 2019Q4

REPORT INFORMATION
  Report Type: Spontaneous
  Country: BR (occurrence: BR)
  Receive Date: 20190813
  Receipt Date: 20191206
  Transmission Date: 20200122
  Serious: Yes (Other)
  Sender: FDA-Public Use
  Company Number: BR-TAKEDA-2019TUS047650

PATIENT
  Age: 60 Year
  Sex: Male
  Weight: 71 kg

DRUGS (7)
  1. DEXILANT [Suspect]
     Active Substance: DEXLANSOPRAZOLE
     Indication: GASTRIC ULCER
     Dosage: 60 MILLIGRAM, BID
     Route: 048
     Dates: start: 201907, end: 20190804
  2. VITAMIN D                          /00107901/ [Concomitant]
     Active Substance: ERGOCALCIFEROL
     Indication: SUPPLEMENTATION THERAPY
     Dosage: UNK
     Route: 048
  3. IRON [Concomitant]
     Active Substance: IRON
     Indication: SUPPLEMENTATION THERAPY
     Dosage: UNK
     Route: 048
  4. SUCRAFILM [Concomitant]
     Indication: GASTRIC ULCER
     Dosage: UNK, TID
     Route: 048
     Dates: start: 201907
  5. SUCRAFILM [Concomitant]
     Indication: STOMACH DILATION PROCEDURE
  6. DEXILANT [Suspect]
     Active Substance: DEXLANSOPRAZOLE
     Indication: STOMACH DILATION PROCEDURE
  7. VITAMIN B12 [Concomitant]
     Active Substance: CYANOCOBALAMIN
     Indication: SUPPLEMENTATION THERAPY
     Dosage: UNK
     Route: 048

REACTIONS (8)
  - Neuropathy peripheral [Recovering/Resolving]
  - Pain in extremity [Recovered/Resolved]
  - Overdose [Recovered/Resolved]
  - Muscular weakness [Recovering/Resolving]
  - Hypoaesthesia [Recovering/Resolving]
  - Movement disorder [Recovering/Resolving]
  - Off label use [Recovered/Resolved]
  - Gait disturbance [Recovering/Resolving]

NARRATIVE: CASE EVENT DATE: 201907
